FAERS Safety Report 5840439-0 (Version None)
Quarter: 2008Q3

REPORT INFORMATION
  Report Type: 
  Country: None (occurrence: None)
  Receive Date: 20080811
  Receipt Date: 20080731
  Transmission Date: 20090109
  Serious: Yes (Hospitalization, Other)
  Sender: FDA-Public Use
  Company Number: US-JNJFOC-20080801367

PATIENT
  Sex: Female
  Weight: 65.77 kg

DRUGS (5)
  1. TOPAMAX [Suspect]
     Indication: PAIN PROPHYLAXIS
     Dosage: 50 MG IN MORNING, 50 MG IN AFTERNOON, 200 MG AT HOUR OF SLEEP
  2. ATIVAN [Concomitant]
     Indication: STRESS
     Route: 048
  3. DURAGESIC-100 [Concomitant]
     Route: 062
  4. DURAGESIC-100 [Concomitant]
     Route: 062
  5. DURAGESIC-100 [Concomitant]
     Indication: PAIN
     Route: 062

REACTIONS (7)
  - CONCUSSION [None]
  - HYPERHIDROSIS [None]
  - LOSS OF CONSCIOUSNESS [None]
  - MALAISE [None]
  - MUSCLE FATIGUE [None]
  - ROAD TRAFFIC ACCIDENT [None]
  - THERAPY CESSATION [None]
